FAERS Safety Report 25201320 (Version 2)
Quarter: 2025Q2

REPORT INFORMATION
  Report Type: Spontaneous
  Country: PL (occurrence: PL)
  Receive Date: 20250416
  Receipt Date: 20250421
  Transmission Date: 20250716
  Serious: Yes (Hospitalization)
  Sender: NOVARTIS
  Company Number: PL-002147023-NVSC2025PL060627

PATIENT
  Age: 76 Year
  Sex: Male

DRUGS (1)
  1. VALSARTAN [Suspect]
     Active Substance: VALSARTAN
     Indication: Product used for unknown indication
     Route: 065

REACTIONS (14)
  - Angina pectoris [Unknown]
  - Exercise tolerance decreased [Unknown]
  - Heart rate irregular [Unknown]
  - Heart rate increased [Unknown]
  - Oedema peripheral [Unknown]
  - Hypertension [Unknown]
  - Atrial fibrillation [Unknown]
  - N-terminal prohormone brain natriuretic peptide increased [Unknown]
  - Troponin increased [Unknown]
  - Low density lipoprotein increased [Unknown]
  - Left atrial enlargement [Unknown]
  - Ventricular hypertrophy [Unknown]
  - Cardiac contractility decreased [Unknown]
  - Chest pain [Unknown]
